FAERS Safety Report 7950545-2 (Version None)
Quarter: 2011Q4

REPORT INFORMATION
  Report Type: 
  Country: None (occurrence: None)
  Receive Date: 20111130
  Receipt Date: 20111123
  Transmission Date: 20120403
  Serious: Yes (Hospitalization, Other)
  Sender: FDA-Public Use
  Company Number: PHHO2011ZA03780

PATIENT
  Sex: Female
  Weight: 60 kg

DRUGS (16)
  1. BLINDED PLACEBO [Suspect]
     Indication: BREAST CANCER METASTATIC
     Dosage: 10 MG, UNK
     Route: 048
     Dates: start: 20110128, end: 20110225
  2. VITAMIN B COMPLEX CAP [Concomitant]
     Indication: SUPPLEMENTATION THERAPY
     Dosage: 1 U, QD
     Route: 048
     Dates: start: 20110211
  3. MICROGENICS [Concomitant]
     Indication: PAIN
     Dosage: 1 U, TID
     Route: 048
     Dates: start: 20110225, end: 20110301
  4. AFINITOR [Suspect]
     Indication: BREAST CANCER METASTATIC
     Dosage: 10 MG, UNK
     Route: 048
     Dates: start: 20110128, end: 20110225
  5. BLINDED NO TREATMENT RECEIVED [Suspect]
     Indication: BREAST CANCER METASTATIC
     Dosage: 10 MG, UNK
     Route: 048
     Dates: start: 20110128, end: 20110225
  6. COMPARATOR TRASTUZUMAB [Suspect]
     Indication: BREAST CANCER METASTATIC
     Dosage: 127.5 MG, UNK
     Route: 042
     Dates: start: 20110128
  7. PACLITAXEL [Suspect]
     Indication: BREAST CANCER METASTATIC
     Dosage: 135.2 MG, UNK
     Route: 042
     Dates: start: 20110128
  8. GLYCOTHYMOLIN [Concomitant]
     Indication: PROPHYLAXIS
     Dosage: 5 ML, PRN
     Route: 048
     Dates: start: 20110128, end: 20110301
  9. IMODIUM [Concomitant]
     Indication: DIARRHOEA
     Dosage: 4 MG, PRN
     Route: 048
     Dates: start: 20110128, end: 20110309
  10. DECADRON [Concomitant]
     Indication: PROPHYLAXIS OF NAUSEA AND VOMITING
     Dosage: 10 MG, WEEKLY
     Route: 042
     Dates: start: 20110206, end: 20110211
  11. CIPROFLOXACIN [Concomitant]
     Indication: MICTURITION URGENCY
     Dosage: 500 MG, BID
     Route: 048
     Dates: start: 20110121, end: 20110127
  12. MYCOSTATIN [Concomitant]
     Indication: MUCOSAL INFLAMMATION
     Dosage: 1 ML, TID
     Route: 042
     Dates: start: 20110225, end: 20110301
  13. VOLTAREN [Concomitant]
     Indication: PAIN
     Dosage: 75 MG, QD
     Route: 030
     Dates: start: 20110225, end: 20110225
  14. MAXOLON [Concomitant]
     Indication: PROPHYLAXIS OF NAUSEA AND VOMITING
     Dosage: 10 MG, PRN
     Route: 048
     Dates: start: 20110128, end: 20110309
  15. METHYL SALICYLATE [Concomitant]
     Indication: PAIN IN EXTREMITY
     Dosage: 1 U, PRN
     Route: 061
     Dates: start: 20110121
  16. FLORASUN [Concomitant]
     Indication: BREAST DISORDER
     Dosage: 1 U, QD
     Route: 061
     Dates: start: 20110218

REACTIONS (8)
  - NAUSEA [None]
  - VOMITING [None]
  - DIARRHOEA [None]
  - MUCOSAL INFLAMMATION [None]
  - ASTHENIA [None]
  - ASPARTATE AMINOTRANSFERASE INCREASED [None]
  - GASTRITIS [None]
  - ALANINE AMINOTRANSFERASE INCREASED [None]
